FAERS Safety Report 8168170-X (Version None)
Quarter: 2012Q1

REPORT INFORMATION
  Report Type: 
  Country: None (occurrence: None)
  Receive Date: 20120227
  Receipt Date: 20120221
  Transmission Date: 20120608
  Serious: Yes (Hospitalization, Other)
  Sender: FDA-Public Use
  Company Number: PHHY2012DE010175

PATIENT
  Sex: Female
  Weight: 68 kg

DRUGS (2)
  1. ZOMETA [Suspect]
     Indication: BONE DISORDER
     Dosage: 4 MG, EVERY 4 WEEKS
     Route: 042
     Dates: start: 20100923
  2. ARIMIDEX [Concomitant]
     Dosage: 1 MG, 1-0-0-0
     Route: 065
     Dates: start: 20100923

REACTIONS (4)
  - CHONDROPATHY [None]
  - MENISCUS LESION [None]
  - ACCIDENT [None]
  - ARTHRALGIA [None]
